FAERS Safety Report 5559471-X (Version None)
Quarter: 2007Q4

REPORT INFORMATION
  Report Type: 
  Country: None (occurrence: None)
  Receive Date: 20071214
  Receipt Date: 20071003
  Transmission Date: 20080405
  Serious: No
  Sender: FDA-Public Use
  Company Number: US-ABBOTT-07P-163-0419594-00

PATIENT
  Sex: Male
  Weight: 77.18 kg

DRUGS (15)
  1. HUMIRA [Suspect]
     Indication: ANKYLOSING SPONDYLITIS
     Route: 058
     Dates: end: 20070906
  2. HUMIRA [Suspect]
     Route: 058
  3. OXYCODONE HYDROCHLORIDE [Concomitant]
     Indication: BACK PAIN
     Route: 048
  4. OXYCODONE HYDROCHLORIDE [Concomitant]
     Indication: ARTHRALGIA
  5. OXYCODONE HYDROCHLORIDE [Concomitant]
     Indication: NECK PAIN
  6. LACTULOSE [Concomitant]
     Indication: AMMONIA
     Route: 048
  7. LACTULOSE [Concomitant]
     Indication: BLOOD BILIRUBIN
  8. METOPROLOL SUCCINATE [Concomitant]
     Indication: HEART RATE INCREASED
     Route: 048
  9. METOPROLOL SUCCINATE [Concomitant]
     Indication: INSOMNIA
  10. MESALAMINE [Concomitant]
     Indication: GASTRITIS
     Route: 048
  11. MESALAMINE [Concomitant]
     Indication: COLITIS
  12. DULOXETINE HYDROCHLORIDE [Concomitant]
     Indication: NEURALGIA
     Route: 048
  13. DULOXETINE HYDROCHLORIDE [Concomitant]
     Indication: FIBROMYALGIA
  14. FUROSEMIDE [Concomitant]
     Indication: DIURETIC THERAPY
     Route: 048
  15. SPIRONOLACTONE [Concomitant]
     Indication: DIURETIC THERAPY
     Route: 048

REACTIONS (2)
  - DYSPNOEA [None]
  - OEDEMA PERIPHERAL [None]
